FAERS Safety Report 7349916-7 (Version None)
Quarter: 2011Q1

REPORT INFORMATION
  Report Type: 
  Country: None (occurrence: None)
  Receive Date: 20110222
  Receipt Date: 20110211
  Transmission Date: 20110831
  Serious: Yes (Other)
  Sender: FDA-Public Use
  Company Number: AEUSA201100027

PATIENT
  Age: 15 Year
  Sex: Female

DRUGS (1)
  1. THROMBATE III [Suspect]
     Indication: ANTITHROMBIN III DEFICIENCY
     Dosage: ;IV
     Route: 042

REACTIONS (2)
  - DRUG EXPOSURE DURING PREGNANCY [None]
  - POSTPARTUM HAEMORRHAGE [None]
